FAERS Safety Report 24770313 (Version 1)
Quarter: 2024Q4

REPORT INFORMATION
  Report Type: Spontaneous
  Country: FR (occurrence: FR)
  Receive Date: 20241224
  Receipt Date: 20241224
  Transmission Date: 20250115
  Serious: Yes (Life-Threatening)
  Sender: HIKMA
  Company Number: None

PATIENT
  Age: 7 Year
  Sex: Male
  Weight: 52 kg

DRUGS (4)
  1. CEFTRIAXONE SODIUM [Suspect]
     Active Substance: CEFTRIAXONE SODIUM
     Indication: Appendicitis perforated
     Dosage: 2500 MILLIGRAM, SINGLE
     Route: 042
     Dates: start: 20241116, end: 20241116
  2. PROPOFOL [Suspect]
     Active Substance: PROPOFOL
     Indication: General anaesthesia
     Dosage: 250 MILLIGRAM, SINGLE
     Route: 042
     Dates: start: 20241116, end: 20241116
  3. ROCURONIUM [Suspect]
     Active Substance: ROCURONIUM BROMIDE
     Indication: General anaesthesia
     Dosage: 40 MILLIGRAM, SINGLE
     Route: 042
     Dates: start: 20241116, end: 20241116
  4. SUFENTANIL CITRATE [Suspect]
     Active Substance: SUFENTANIL CITRATE
     Indication: General anaesthesia
     Dosage: 7.5 MICROGRAM, SINGLE
     Route: 042
     Dates: start: 20241116, end: 20241116

REACTIONS (1)
  - Anaphylactic shock [Recovered/Resolved]

NARRATIVE: CASE EVENT DATE: 20241116
